FAERS Safety Report 6091320-6 (Version None)
Quarter: 2009Q1

REPORT INFORMATION
  Report Type: 
  Country: None (occurrence: None)
  Receive Date: 20090225
  Receipt Date: 20090211
  Transmission Date: 20090719
  Serious: Yes (Hospitalization)
  Sender: FDA-Public Use
  Company Number: ES-ELI_LILLY_AND_COMPANY-ES200902002729

PATIENT
  Age: 64 Year
  Sex: Female

DRUGS (6)
  1. FORTEO [Suspect]
     Indication: OSTEOPOROSIS
     Dosage: 20 UG, UNKNOWN
     Route: 058
     Dates: start: 20080701
  2. OMEPRAZOLE [Concomitant]
     Dosage: UNK, UNKNOWN
     Route: 065
  3. SUTRIL [Concomitant]
     Dosage: UNK, UNKNOWN
     Route: 065
  4. DACORTIN [Concomitant]
     Dosage: UNK, UNKNOWN
     Route: 065
  5. LORAZEPAM [Concomitant]
     Dosage: UNK, UNKNOWN
     Route: 065
  6. LOBIVON [Concomitant]
     Dosage: UNK, UNKNOWN
     Route: 065

REACTIONS (2)
  - BRONCHITIS [None]
  - FEELING COLD [None]
